FAERS Safety Report 8355151-6 (Version None)
Quarter: 2012Q2

REPORT INFORMATION
  Report Type: 
  Country: None (occurrence: None)
  Receive Date: 20120511
  Receipt Date: 20120427
  Transmission Date: 20120825
  Serious: Yes (Other)
  Sender: FDA-Public Use
  Company Number: CHPA2012US010075

PATIENT
  Sex: Male

DRUGS (1)
  1. MAALOX ADV MAXIMUM STRENGTH ANTACID/ANTIGAS [Suspect]
     Indication: GASTROOESOPHAGEAL REFLUX DISEASE
     Dosage: 1 OR 2 TEASPOONS, UNK
     Route: 048
     Dates: start: 19860101

REACTIONS (7)
  - OESOPHAGEAL DISORDER [None]
  - OFF LABEL USE [None]
  - STRESS [None]
  - INCORRECT DRUG ADMINISTRATION DURATION [None]
  - DYSPHAGIA [None]
  - LUNG NEOPLASM MALIGNANT [None]
  - GASTRIC DISORDER [None]
